FAERS Safety Report 4479916-6 (Version None)
Quarter: 2004Q3

REPORT INFORMATION
  Report Type: 
  Country: None (occurrence: None)
  Receive Date: 20040923
  Receipt Date: 20040521
  Transmission Date: 20050211
  Serious: No
  Sender: FDA-Public Use
  Company Number: USA040568204

PATIENT
  Age: 77 Year
  Sex: Female
  Weight: 53 kg

DRUGS (3)
  1. FORTEO [Suspect]
     Indication: OSTEOPOROSIS
     Dosage: 20 UG/ 1 DAY
     Dates: start: 20031020, end: 20040301
  2. PANCREATIC ENZYMES [Concomitant]
  3. VITAMIN D [Concomitant]

REACTIONS (2)
  - STOMACH DISCOMFORT [None]
  - VITAMIN D DECREASED [None]
